FAERS Safety Report 5952815-6 (Version None)
Quarter: 2008Q4

REPORT INFORMATION
  Report Type: 
  Country: None (occurrence: None)
  Receive Date: 20081114
  Receipt Date: 20081104
  Transmission Date: 20090506
  Serious: Yes (Other)
  Sender: FDA-Public Use
  Company Number: JP-JNJFOC-20080205901

PATIENT
  Sex: Male
  Weight: 86 kg

DRUGS (11)
  1. RISPERDAL [Suspect]
     Route: 048
  2. RISPERDAL [Suspect]
     Route: 048
  3. RISPERDAL [Suspect]
     Route: 048
  4. RISPERDAL [Suspect]
     Indication: SCHIZOPHRENIA, PARANOID TYPE
     Route: 048
  5. ROHYPNOL [Concomitant]
     Route: 048
  6. LENDORMIN [Concomitant]
     Route: 048
  7. LEXOTAN [Concomitant]
     Route: 048
  8. BIPERIDEN HYDROCHLORIDE TAB [Concomitant]
     Indication: PROPHYLAXIS
     Route: 048
  9. LODOPIN [Concomitant]
     Route: 048
  10. DESYREL [Concomitant]
     Route: 048
  11. MYSLEE [Concomitant]
     Route: 048

REACTIONS (3)
  - ANAEMIA [None]
  - GASTROINTESTINAL HAEMORRHAGE [None]
  - WEIGHT DECREASED [None]
